FAERS Safety Report 6631177-5 (Version None)
Quarter: 2010Q1

REPORT INFORMATION
  Report Type: 
  Country: None (occurrence: None)
  Receive Date: 20100309
  Receipt Date: 20100226
  Transmission Date: 20100710
  Serious: Yes (Hospitalization)
  Sender: FDA-Public Use
  Company Number: 007392

PATIENT
  Sex: Female

DRUGS (6)
  1. KEPPRA [Suspect]
     Indication: PARTIAL SEIZURES
     Dosage: (250 MG QD ORAL)
     Route: 048
     Dates: start: 20100129, end: 20100201
  2. DEROXAT             (DEROXAT) (NOT  SPECIFIED) [Suspect]
     Indication: DEPRESSION
     Dosage: (20 MG BID ORAL)
     Route: 048
     Dates: start: 20100128, end: 20100201
  3. IDEOS        /00944201/ [Concomitant]
  4. LEVOTHYROX [Concomitant]
  5. ATARAX [Concomitant]
  6. RIVOTRIL [Concomitant]

REACTIONS (2)
  - AGITATION [None]
  - DELIRIUM [None]
